FAERS Safety Report 25055084 (Version 1)
Quarter: 2025Q1

REPORT INFORMATION
  Report Type: Report from Study
  Country: CO (occurrence: CO)
  Receive Date: 20250308
  Receipt Date: 20250308
  Transmission Date: 20250409
  Serious: Yes (Other)
  Sender: ABBVIE
  Company Number: CO-ABBVIE-5962062

PATIENT
  Age: 68 Year
  Sex: Female
  Weight: 44 kg

DRUGS (2)
  1. VENCLEXTA [Suspect]
     Active Substance: VENETOCLAX
     Indication: Acute myeloid leukaemia
     Dosage: FORM STRENGTH: 100 MILLIGRAM. EXPIRATION CYCLES BY 14
     Route: 048
     Dates: start: 20231002, end: 20240907
  2. AZACITIDINE [Concomitant]
     Active Substance: AZACITIDINE
     Indication: Acute myeloid leukaemia
     Route: 058
     Dates: start: 2023, end: 202409

REACTIONS (5)
  - Death [Fatal]
  - Platelet count decreased [Unknown]
  - Immunodeficiency [Unknown]
  - Haemoglobin decreased [Not Recovered/Not Resolved]
  - Drug ineffective [Unknown]

NARRATIVE: CASE EVENT DATE: 20240901
